FAERS Safety Report 6750860-4 (Version None)
Quarter: 2010Q2

REPORT INFORMATION
  Report Type: 
  Country: None (occurrence: None)
  Receive Date: 20100602
  Receipt Date: 20100526
  Transmission Date: 20101027
  Serious: Yes (Other)
  Sender: FDA-Public Use
  Company Number: US-BAYER-201017612NA

PATIENT
  Age: 40 Year
  Sex: Female
  Weight: 50 kg

DRUGS (2)
  1. YAZ [Suspect]
     Indication: ORAL CONTRACEPTION
     Route: 048
     Dates: start: 20090701, end: 20100201
  2. YAZ [Suspect]
     Route: 048

REACTIONS (6)
  - ALOPECIA [None]
  - ANXIETY [None]
  - BLOOD AMYLASE INCREASED [None]
  - DEPRESSION [None]
  - RED BLOOD CELL COUNT ABNORMAL [None]
  - SUICIDAL IDEATION [None]
